FAERS Safety Report 5767608-2 (Version None)
Quarter: 2008Q2

REPORT INFORMATION
  Report Type: 
  Country: None (occurrence: None)
  Receive Date: 20080611
  Receipt Date: 20080611
  Transmission Date: 20081010
  Serious: Yes (Other)
  Sender: FDA-Public Use
  Company Number: None

PATIENT
  Sex: Male

DRUGS (7)
  1. REVLIMID [Suspect]
     Indication: MYELODYSPLASTIC SYNDROME
     Dosage: 10MG DAILY PO
     Route: 048
  2. FUROSEMIDE [Concomitant]
  3. K-TAB [Concomitant]
  4. VICODIN [Concomitant]
  5. PROPRANOLOL [Concomitant]
  6. FAMOTIDINE [Concomitant]
  7. TERAZOSIN HCL [Concomitant]

REACTIONS (1)
  - PANCYTOPENIA [None]
